FAERS Safety Report 14038670 (Version 2)
Quarter: 2017Q4

REPORT INFORMATION
  Report Type: Report from Study
  Country: AU (occurrence: AU)
  Receive Date: 20171004
  Receipt Date: 20171013
  Transmission Date: 20180321
  Serious: Yes (Hospitalization)
  Sender: FDA-Public Use
  Company Number: AU-PFIZER INC-2017424762

PATIENT
  Age: 75 Year
  Sex: Female
  Weight: 79 kg

DRUGS (17)
  1. OXYCODONE HYDROCHLORIDE. [Concomitant]
     Active Substance: OXYCODONE HYDROCHLORIDE
     Indication: TUMOUR PAIN
     Dosage: 5 MG, AS NEEDED
     Route: 048
     Dates: start: 20170104, end: 20170718
  2. CARBOPLATIN. [Suspect]
     Active Substance: CARBOPLATIN
     Indication: NON-SMALL CELL LUNG CANCER
     Dosage: 550 MG, UNK
     Route: 042
     Dates: start: 20170113
  3. AVELUMAB [Suspect]
     Active Substance: AVELUMAB
     Dosage: 660 MG, ONCE EVERY 2 WEEKS
     Route: 042
  4. PARACETAMOL [Concomitant]
     Active Substance: ACETAMINOPHEN
     Indication: TUMOUR PAIN
     Dosage: 1000 MG, AS NEEDED
     Route: 048
     Dates: start: 20170104
  5. PEMETREXED. [Suspect]
     Active Substance: PEMETREXED
     Dosage: 900 MG, UNK
     Route: 042
     Dates: end: 20170505
  6. AVELUMAB [Suspect]
     Active Substance: AVELUMAB
     Dosage: 660 MG, ONCE EVERY 2 WEEKS
     Route: 042
     Dates: end: 20170913
  7. ORDINE /00036302/ [Concomitant]
     Indication: TUMOUR PAIN
     Dosage: 10 MG, AS NEEDED
     Route: 048
     Dates: start: 20170718
  8. AVELUMAB [Suspect]
     Active Substance: AVELUMAB
     Dosage: 660 MG, ONCE EVERY 2 WEEKS
     Route: 042
  9. NALOXONE HCL W/OXYCODONE HCL [Concomitant]
     Active Substance: NALOXONE HYDROCHLORIDE\OXYCODONE HYDROCHLORIDE
     Dosage: 5/2.5 MILLIGRAM
     Route: 048
     Dates: start: 20170202, end: 20170302
  10. MS CONTIN [Concomitant]
     Active Substance: MORPHINE SULFATE
     Indication: TUMOUR PAIN
     Dosage: 30 MG, 2X/DAY
     Route: 048
     Dates: start: 20170718
  11. CARBOPLATIN. [Suspect]
     Active Substance: CARBOPLATIN
     Dosage: 550 MG, UNK
     Route: 042
     Dates: end: 20170505
  12. NALOXONE HCL W/OXYCODONE HCL [Concomitant]
     Active Substance: NALOXONE HYDROCHLORIDE\OXYCODONE HYDROCHLORIDE
     Indication: TUMOUR PAIN
     Dosage: 10/5 MILLIGRAM
     Route: 048
     Dates: start: 20170104, end: 20170202
  13. AVELUMAB [Suspect]
     Active Substance: AVELUMAB
     Indication: NON-SMALL CELL LUNG CANCER
     Dosage: 660 MG, ONCE EVERY 2 WEEKS
     Route: 042
     Dates: start: 20170719
  14. TARGIN [Concomitant]
     Active Substance: NALOXONE HYDROCHLORIDE\OXYCODONE HYDROCHLORIDE
     Dosage: 20/10 MILLIGRAM
     Route: 048
     Dates: start: 20170714, end: 20170718
  15. CARBOPLATIN. [Suspect]
     Active Substance: CARBOPLATIN
     Dosage: 550 MG, UNK
     Route: 042
  16. PEMETREXED. [Suspect]
     Active Substance: PEMETREXED
     Indication: NON-SMALL CELL LUNG CANCER
     Dosage: 900 MG, UNK
     Route: 042
     Dates: start: 20170113
  17. TARGIN [Concomitant]
     Active Substance: NALOXONE HYDROCHLORIDE\OXYCODONE HYDROCHLORIDE
     Indication: TUMOUR PAIN
     Dosage: 10/5 MILLIGRAM
     Route: 048
     Dates: start: 20170706, end: 20170714

REACTIONS (1)
  - Tumour pain [Not Recovered/Not Resolved]

NARRATIVE: CASE EVENT DATE: 20170926
